FAERS Safety Report 4770872-X (Version None)
Quarter: 2005Q3

REPORT INFORMATION
  Report Type: 
  Country: None (occurrence: None)
  Receive Date: 20050915
  Receipt Date: 20050819
  Transmission Date: 20060218
  Serious: Yes (Life-Threatening, Hospitalization)
  Sender: FDA-Public Use
  Company Number: US-ROCHE-415150

PATIENT
  Age: 55 Year
  Sex: Female
  Weight: 72.1 kg

DRUGS (3)
  1. PEGASYS [Suspect]
     Indication: HEPATITIS C
     Dosage: RECEIVED TOTAL NUMBER OF 17 DOSES.
     Route: 058
     Dates: start: 20050319, end: 20050805
  2. COPEGUS [Suspect]
     Indication: HEPATITIS C
     Route: 048
     Dates: start: 20050319, end: 20050808
  3. COZAAR [Concomitant]
     Indication: HYPERTENSION
     Route: 048
     Dates: end: 20050809

REACTIONS (8)
  - HAEMOLYTIC ANAEMIA [None]
  - INFUSION RELATED REACTION [None]
  - JAUNDICE [None]
  - NAUSEA [None]
  - PLATELET COUNT DECREASED [None]
  - RENAL FAILURE [None]
  - VOMITING [None]
  - WHITE BLOOD CELL COUNT DECREASED [None]
